FAERS Safety Report 21178576 (Version 4)
Quarter: 2022Q4

REPORT INFORMATION
  Report Type: Spontaneous
  Country: CZ (occurrence: CZ)
  Receive Date: 20220805
  Receipt Date: 20221222
  Transmission Date: 20230113
  Serious: Yes (Life-Threatening, Hospitalization, Other)
  Sender: FDA-Public Use
  Company Number: None

PATIENT
  Age: 52 Year
  Sex: Male
  Weight: 65 kg

DRUGS (4)
  1. MEDROL [Suspect]
     Active Substance: METHYLPREDNISOLONE
     Indication: Tinnitus
     Dosage: 16 MG, DAY 1,2: 3-2-0; DAY 3,4: 3-1-0; DAY 5,6: 2-1-0; DAY 7,8: 2-0-0; DAY 9,10: 1-0-0
     Route: 048
     Dates: start: 20220719
  2. MEDROL [Suspect]
     Active Substance: METHYLPREDNISOLONE
     Indication: Deafness traumatic
  3. BETAHISTINE [Concomitant]
     Active Substance: BETAHISTINE
     Indication: Tinnitus
     Dosage: 24 MG, 3X/DAY, FREQ:8 H;1-1-1
     Route: 048
     Dates: start: 20220719
  4. TOVIAZ [Concomitant]
     Active Substance: FESOTERODINE FUMARATE
     Dosage: UNK

REACTIONS (5)
  - Pancreatitis acute [Recovering/Resolving]
  - Off label use [Unknown]
  - Gamma-glutamyltransferase increased [Not Recovered/Not Resolved]
  - Aspartate aminotransferase increased [Not Recovered/Not Resolved]
  - Blood triglycerides increased [Unknown]

NARRATIVE: CASE EVENT DATE: 20220719
